FAERS Safety Report 6845334-6 (Version None)
Quarter: 2010Q3

REPORT INFORMATION
  Report Type: 
  Country: None (occurrence: None)
  Receive Date: 20100715
  Receipt Date: 20070818
  Transmission Date: 20110219
  Serious: No
  Sender: FDA-Public Use
  Company Number: US-PFIZER INC-2007070634

PATIENT
  Sex: Female
  Weight: 65 kg

DRUGS (4)
  1. CHANTIX [Suspect]
     Indication: SMOKING CESSATION THERAPY
     Dates: start: 20070810
  2. ACETYLSALICYLIC ACID [Concomitant]
     Dates: end: 20070801
  3. HYZAAR [Concomitant]
  4. ZOCOR [Concomitant]

REACTIONS (8)
  - ABNORMAL DREAMS [None]
  - DRUG INEFFECTIVE [None]
  - INSOMNIA [None]
  - LETHARGY [None]
  - MOOD ALTERED [None]
  - PAIN [None]
  - SOMNOLENCE [None]
  - VOMITING [None]
